FAERS Safety Report 6347444-9 (Version None)
Quarter: 2009Q3

REPORT INFORMATION
  Report Type: 
  Country: None (occurrence: None)
  Receive Date: 20090910
  Receipt Date: 20090908
  Transmission Date: 20100115
  Serious: Yes (Hospitalization, Other)
  Sender: FDA-Public Use
  Company Number: US-TEVA-208572USA

PATIENT
  Age: 51 Year
  Sex: Female

DRUGS (6)
  1. CISPLATIN [Suspect]
     Indication: NON-SMALL CELL LUNG CANCER
     Route: 041
     Dates: start: 20090721
  2. DOCETAXEL [Suspect]
     Indication: NON-SMALL CELL LUNG CANCER
     Route: 041
     Dates: start: 20090721, end: 20090721
  3. SERTRALINE HCL [Concomitant]
  4. ALPRAZOLAM [Concomitant]
     Indication: ANXIETY
  5. PARACETAMOL [Concomitant]
  6. TYLOX                              /00446701/ [Concomitant]
     Indication: PAIN

REACTIONS (7)
  - ABDOMINAL PAIN UPPER [None]
  - CARDIAC ARREST [None]
  - COLD SWEAT [None]
  - HYPERHIDROSIS [None]
  - LOSS OF CONSCIOUSNESS [None]
  - PULSE ABSENT [None]
  - RESPIRATORY RATE INCREASED [None]
